FAERS Safety Report 10748733 (Version 1)
Quarter: 2015Q1

REPORT INFORMATION
  Report Type: Spontaneous
  Country: TW (occurrence: TW)
  Receive Date: 20150129
  Receipt Date: 20150129
  Transmission Date: 20150721
  Serious: Yes (Hospitalization)
  Sender: FDA-Public Use
  Company Number: PHHY2015TW008399

PATIENT
  Age: 49 Year
  Sex: Female

DRUGS (4)
  1. DIPHENHYDRAMINE [Suspect]
     Active Substance: DIPHENHYDRAMINE
     Indication: INSOMNIA
  2. WARFARIN [Concomitant]
     Active Substance: WARFARIN
     Indication: THROMBOSIS PROPHYLAXIS
     Dosage: 1 MG, QD
  3. BUPROPION [Concomitant]
     Active Substance: BUPROPION
     Indication: DEPRESSION
     Dosage: 150 MG, BID
     Route: 065
  4. DIPHENHYDRAMINE [Suspect]
     Active Substance: DIPHENHYDRAMINE
     Indication: URTICARIA
     Dosage: 30 MG, UNK
     Route: 030

REACTIONS (15)
  - Disturbance in attention [Recovered/Resolved]
  - Injection site swelling [Recovering/Resolving]
  - Oedema peripheral [Unknown]
  - Injection site pain [Recovering/Resolving]
  - Irritability [Recovered/Resolved]
  - Electrocardiogram QT prolonged [Unknown]
  - Anxiety [Recovered/Resolved]
  - Muscle necrosis [Unknown]
  - Gait disturbance [Unknown]
  - Injection site warmth [Recovering/Resolving]
  - Drug dependence [Unknown]
  - Drug withdrawal syndrome [Recovered/Resolved]
  - Heart rate increased [Recovered/Resolved]
  - Insomnia [Recovered/Resolved]
  - Muscle injury [Unknown]
